FAERS Safety Report 22204750 (Version 2)
Quarter: 2023Q2

REPORT INFORMATION
  Report Type: Other
  Country: AU (occurrence: AU)
  Receive Date: 20230413
  Receipt Date: 20230601
  Transmission Date: 20230722
  Serious: Yes (Other)
  Sender: FDA-Public Use
  Company Number: AU-CELLTRION INC.-2023AU007331

PATIENT

DRUGS (8)
  1. RITUXIMAB [Suspect]
     Active Substance: RITUXIMAB
     Indication: Product used for unknown indication
  2. CYCLOPHOSPHAMIDE [Suspect]
     Active Substance: CYCLOPHOSPHAMIDE
     Indication: Product used for unknown indication
  3. FLUDARABINE PHOSPHATE [Suspect]
     Active Substance: FLUDARABINE PHOSPHATE
     Indication: Product used for unknown indication
  4. BENDAMUSTINE HYDROCHLORIDE [Suspect]
     Active Substance: BENDAMUSTINE HYDROCHLORIDE
     Indication: Product used for unknown indication
  5. DOXORUBICIN HYDROCHLORIDE [Concomitant]
     Active Substance: DOXORUBICIN HYDROCHLORIDE
  6. IBRUTINIB [Concomitant]
     Active Substance: IBRUTINIB
  7. PREDNISONE [Concomitant]
     Active Substance: PREDNISONE
  8. VINCRISTINE SULFATE [Concomitant]
     Active Substance: VINCRISTINE SULFATE

REACTIONS (13)
  - Diffuse large B-cell lymphoma recurrent [Unknown]
  - Ureteric obstruction [Unknown]
  - Cytopenia [Unknown]
  - Neuropathy peripheral [Unknown]
  - Blood pressure measurement [Unknown]
  - Haemorrhoids [Unknown]
  - Vertebral foraminal stenosis [Unknown]
  - Arthralgia [Unknown]
  - Lower respiratory tract infection [Unknown]
  - Malaise [Unknown]
  - Myalgia [Unknown]
  - Weight decreased [Unknown]
  - Treatment failure [Unknown]
